FAERS Safety Report 16180827 (Version 2)
Quarter: 2019Q2

REPORT INFORMATION
  Report Type: Spontaneous
  Country: DE (occurrence: DE)
  Receive Date: 20190410
  Receipt Date: 20190502
  Transmission Date: 20190711
  Serious: No
  Sender: FDA-Public Use
  Company Number: DE-BAYER-2019-070051

PATIENT
  Age: 5 Year
  Sex: Male

DRUGS (1)
  1. ALIQOPA [Suspect]
     Active Substance: COPANLISIB
     Indication: BRAIN NEOPLASM

REACTIONS (4)
  - Off label use [None]
  - Product supply issue [None]
  - Product use in unapproved indication [None]
  - Product administered to patient of inappropriate age [None]
